FAERS Safety Report 5005326-9 (Version None)
Quarter: 2006Q2

REPORT INFORMATION
  Report Type: 
  Country: None (occurrence: None)
  Receive Date: 20060515
  Receipt Date: 20060508
  Transmission Date: 20061013
  Serious: Yes (Hospitalization)
  Sender: FDA-Public Use
  Company Number: 2006BI005819

PATIENT
  Age: 51 Year
  Sex: Female
  Weight: 149.687 kg

DRUGS (5)
  1. AVONEX [Suspect]
     Indication: MULTIPLE SCLEROSIS
     Dosage: IM
     Route: 030
     Dates: start: 19960301
  2. AVONEX [Suspect]
     Indication: MULTIPLE SCLEROSIS
     Dosage: 30 UG QW IM
     Route: 030
  3. LASIX [Concomitant]
  4. POTASSIUM [Concomitant]
  5. PAIN MEDICATION (NOS) [Concomitant]

REACTIONS (1)
  - UNEVALUABLE EVENT [None]
